FAERS Safety Report 5857540-8 (Version None)
Quarter: 2008Q3

REPORT INFORMATION
  Report Type: 
  Country: None (occurrence: None)
  Receive Date: 20080818
  Receipt Date: 20080627
  Transmission Date: 20090109
  Serious: No
  Sender: FDA-Public Use
  Company Number: TPA2008A00994

PATIENT
  Sex: Female

DRUGS (2)
  1. ROZEREM [Suspect]
     Indication: INSOMNIA
     Dosage: 8 MG, QHS, PER ORAL
     Route: 048
     Dates: start: 20080527
  2. AMBIEN [Suspect]
     Indication: INSOMNIA
     Dosage: 10 MG, QHS, PER ORAL
     Route: 048
     Dates: end: 20080101

REACTIONS (4)
  - FEELING ABNORMAL [None]
  - MIDDLE INSOMNIA [None]
  - POOR QUALITY SLEEP [None]
  - STOMACH DISCOMFORT [None]
